FAERS Safety Report 8771142 (Version 2)
Quarter: 2012Q4

REPORT INFORMATION
  Report Type: 
  Country: FR (occurrence: FR)
  Receive Date: 20120906
  Receipt Date: 20120906
  Transmission Date: 20130627
  Serious: Yes (Life-Threatening, Hospitalization, Other)
  Sender: FDA-Public Use
  Company Number: FR-BRISTOL-MYERS SQUIBB COMPANY-16691693

PATIENT
  Age: 13 Year
  Sex: Male
  Weight: 29 kg

DRUGS (1)
  1. HYDREA CAPS 500 MG [Suspect]
     Dosage: 20 mg/kilogram
     Route: 048
     Dates: start: 201001, end: 20120614

REACTIONS (5)
  - Bone marrow failure [Recovered/Resolved]
  - Off label use [Unknown]
  - Discomfort [None]
  - Overdose [None]
  - Loss of consciousness [None]
